FAERS Safety Report 17225014 (Version 3)
Quarter: 2023Q4

REPORT INFORMATION
  Report Type: Spontaneous
  Country: FR (occurrence: FR)
  Receive Date: 20200102
  Receipt Date: 20231026
  Transmission Date: 20240110
  Serious: Yes (Hospitalization)
  Sender: FDA-Public Use
  Company Number: FR-EMA-DD-20191209-GANGAL_S-133859

PATIENT
  Age: 71 Year
  Sex: Male
  Weight: 80 kg

DRUGS (8)
  1. PREDNISONE [Suspect]
     Active Substance: PREDNISONE
     Indication: Prostate cancer metastatic
     Dosage: UNK UNK, UNK
     Route: 048
  2. PREDNISONE [Suspect]
     Active Substance: PREDNISONE
     Dosage: UNK,
     Route: 048
  3. CABAZITAXEL [Suspect]
     Active Substance: CABAZITAXEL
     Indication: Prostate cancer metastatic
     Dosage: UNK, CYCLIC
     Route: 051
     Dates: start: 20180129, end: 20180129
  4. CABAZITAXEL [Suspect]
     Active Substance: CABAZITAXEL
     Dosage: UNK, CYCLIC
     Route: 051
     Dates: start: 20180403, end: 20180403
  5. LENOGRASTIM [Suspect]
     Active Substance: LENOGRASTIM
     Indication: Product used for unknown indication
     Dosage: UNK
     Route: 051
  6. LENOGRASTIM [Suspect]
     Active Substance: LENOGRASTIM
     Dosage: UNK
     Route: 051
  7. GOSERELIN [Concomitant]
     Active Substance: GOSERELIN
     Indication: Product used for unknown indication
     Dosage: UNK UNK,UNK
     Route: 065
     Dates: start: 20110215
  8. METOCLOPRAMIDE [Concomitant]
     Active Substance: METOCLOPRAMIDE
     Indication: Nausea
     Dosage: UNK
     Route: 065
     Dates: start: 20180216

REACTIONS (2)
  - Urinary tract infection [Recovered/Resolved]
  - Malnutrition [Unknown]

NARRATIVE: CASE EVENT DATE: 20180413
